FAERS Safety Report 7190461-X (Version None)
Quarter: 2010Q4

REPORT INFORMATION
  Report Type: 
  Country: None (occurrence: None)
  Receive Date: 20101223
  Receipt Date: 20101012
  Transmission Date: 20110411
  Serious: Yes (Hospitalization)
  Sender: FDA-Public Use
  Company Number: TN-SANOFI-AVENTIS-2010SA063188

PATIENT
  Age: 54 Year
  Sex: Male
  Weight: 85 kg

DRUGS (1)
  1. ALFUZOSIN HCL [Suspect]
     Route: 048
     Dates: start: 20101008

REACTIONS (3)
  - FALL [None]
  - HYPOTENSION [None]
  - LOSS OF CONSCIOUSNESS [None]
